FAERS Safety Report 7256711-6 (Version None)
Quarter: 2011Q1

REPORT INFORMATION
  Report Type: 
  Country: None (occurrence: None)
  Receive Date: 20110129
  Receipt Date: 20100709
  Transmission Date: 20110831
  Serious: No
  Sender: FDA-Public Use
  Company Number: US-ABBOTT-10P-163-0656750-00

PATIENT
  Sex: Male
  Weight: 69.008 kg

DRUGS (10)
  1. MAXZIDE [Concomitant]
     Indication: FLUID RETENTION
  2. ASPIRIN [Concomitant]
     Indication: PRODUCT USED FOR UNKNOWN INDICATION
  3. SULFASALAZINE [Concomitant]
     Indication: RHEUMATOID ARTHRITIS
  4. HUMULIN R [Concomitant]
     Indication: DIABETES MELLITUS
  5. ZOCOR [Concomitant]
     Indication: HYPERLIPIDAEMIA
  6. METOPROLOL [Concomitant]
     Indication: HYPERTENSION
  7. HUMIRA [Suspect]
     Indication: RHEUMATOID ARTHRITIS
     Dates: start: 20100226
  8. DILANTIN [Concomitant]
     Indication: CONVULSION
  9. LANTUS [Concomitant]
     Indication: DIABETES MELLITUS
  10. NOVOLIN 70/30 [Concomitant]
     Indication: DIABETES MELLITUS

REACTIONS (1)
  - DRUG INEFFECTIVE [None]
